FAERS Safety Report 9243081 (Version 1)
Quarter: 2013Q2

REPORT INFORMATION
  Report Type: Spontaneous
  Country: DE (occurrence: DE)
  Receive Date: 20130419
  Receipt Date: 20130419
  Transmission Date: 20140414
  Serious: Yes (Life-Threatening, Hospitalization)
  Sender: FDA-Public Use
  Company Number: DE-009507513-1304DEU006894

PATIENT
  Age: 60 Year
  Sex: Male
  Weight: 77 kg

DRUGS (6)
  1. LORZAAR PROTECT 50MG FILMTABLETTEN [Suspect]
     Indication: HYPERTENSION
     Dosage: 50 MG, BID
     Route: 048
  2. LORZAAR PROTECT 50MG FILMTABLETTEN [Suspect]
     Dosage: 50 MG, QD
     Route: 048
  3. GLITAZON (PIOGLITAZONE HYDROCHLORIDE) [Concomitant]
     Indication: DIABETES MELLITUS
     Dosage: 1 DF, QD
  4. SIMVASTATIN [Concomitant]
     Indication: HYPERLIPIDAEMIA
  5. ASPIRIN [Concomitant]
  6. CARMEN [Concomitant]
     Indication: HYPERTENSION
     Dosage: 10 MG, BID

REACTIONS (2)
  - Cerebrovascular accident [Recovering/Resolving]
  - Hypertension [Unknown]
